FAERS Safety Report 6684515-1 (Version None)
Quarter: 2010Q2

REPORT INFORMATION
  Report Type: 
  Country: None (occurrence: None)
  Receive Date: 20100416
  Receipt Date: 20100407
  Transmission Date: 20101027
  Serious: Yes (Hospitalization)
  Sender: FDA-Public Use
  Company Number: JP-BRISTOL-MYERS SQUIBB COMPANY-15061872

PATIENT
  Age: 49 Year
  Sex: Female

DRUGS (4)
  1. ABILIFY [Suspect]
     Indication: SCHIZOPHRENIA
     Route: 048
     Dates: start: 20090201, end: 20100401
  2. WARFARIN SODIUM [Suspect]
     Indication: PULMONARY EMBOLISM
     Dates: start: 20080601
  3. CONTOMIN [Concomitant]
     Dosage: FORM: TABLET
  4. SERENACE [Concomitant]

REACTIONS (1)
  - PULMONARY EMBOLISM [None]
